FAERS Safety Report 18714262 (Version 1)
Quarter: 2021Q1

REPORT INFORMATION
  Report Type: Spontaneous
  Country: US (occurrence: US)
  Receive Date: 20210107
  Receipt Date: 20210107
  Transmission Date: 20210419
  Serious: No
  Sender: FDA-Public Use
  Company Number: US-ASTRAZENECA-2020SF74898

PATIENT
  Sex: Male
  Weight: 97.1 kg

DRUGS (4)
  1. METFORMIN [Concomitant]
     Active Substance: METFORMIN HYDROCHLORIDE
     Indication: GLYCOSYLATED HAEMOGLOBIN ABNORMAL
  2. ALOGLIPTIN. [Concomitant]
     Active Substance: ALOGLIPTIN
     Indication: GLYCOSYLATED HAEMOGLOBIN ABNORMAL
  3. BYDUREON BCISE [Suspect]
     Active Substance: EXENATIDE
     Indication: GLYCOSYLATED HAEMOGLOBIN ABNORMAL
     Route: 058
     Dates: start: 202011
  4. FARXIGA [Suspect]
     Active Substance: DAPAGLIFLOZIN PROPANEDIOL
     Indication: GLYCOSYLATED HAEMOGLOBIN ABNORMAL
     Dosage: 10.0MG UNKNOWN
     Route: 048
     Dates: start: 2019

REACTIONS (4)
  - Blood glucose increased [Unknown]
  - Glycosylated haemoglobin abnormal [Unknown]
  - Injection site mass [Unknown]
  - Drug ineffective [Unknown]
